FAERS Safety Report 21932976 (Version 4)
Quarter: 2023Q1

REPORT INFORMATION
  Report Type: Spontaneous
  Country: US (occurrence: US)
  Receive Date: 20230131
  Receipt Date: 20230321
  Transmission Date: 20230417
  Serious: No
  Sender: FDA-Public Use
  Company Number: US-Calliditas-2023CAL00081

PATIENT
  Age: 71 Year
  Sex: Female

DRUGS (1)
  1. TARPEYO [Suspect]
     Active Substance: BUDESONIDE
     Indication: Haematuria
     Dosage: 16 MG (4 MG CAPSULES) ONCE DAILY
     Route: 048
     Dates: start: 20230112

REACTIONS (5)
  - Skin exfoliation [Recovered/Resolved]
  - Acne [Not Recovered/Not Resolved]
  - Product use complaint [Unknown]
  - Hypertension [Unknown]
  - Hirsutism [Unknown]

NARRATIVE: CASE EVENT DATE: 20230101
